FAERS Safety Report 11505076 (Version 1)
Quarter: 2015Q3

REPORT INFORMATION
  Report Type: Spontaneous
  Country: US (occurrence: US)
  Receive Date: 20150915
  Receipt Date: 20150915
  Transmission Date: 20151125
  Serious: No
  Sender: FDA-Public Use
  Company Number: US-ROCHE-768446

PATIENT
  Age: 45 Year
  Sex: Female

DRUGS (3)
  1. COPEGUS [Suspect]
     Active Substance: RIBAVIRIN
     Indication: HEPATITIS C
     Dosage: INDICATION:HCV, GENOTYPE 2. IN DIVIDED DOSES. FORM: PILLS
     Route: 065
  2. PEGASYS [Suspect]
     Active Substance: PEGINTERFERON ALFA-2A
     Indication: HEPATITIS C
     Dosage: INDICATION: HCV, GENOTYPE 2 AND 3. FORM: PRE-FILLED SYRINGE
     Route: 065
  3. COPEGUS [Suspect]
     Active Substance: RIBAVIRIN
     Route: 065

REACTIONS (5)
  - Heart rate increased [Unknown]
  - Anxiety [Unknown]
  - Arthralgia [Unknown]
  - Body temperature increased [Unknown]
  - Headache [Unknown]

NARRATIVE: CASE EVENT DATE: 20110323
